FAERS Safety Report 5605521-1 (Version None)
Quarter: 2008Q1

REPORT INFORMATION
  Report Type: 
  Country: None (occurrence: None)
  Receive Date: 20080129
  Receipt Date: 20080118
  Transmission Date: 20080703
  Serious: Yes (Death)
  Sender: FDA-Public Use
  Company Number: KR-JNJFOC-20080103543

PATIENT
  Age: 61 Year
  Sex: Male

DRUGS (5)
  1. DURAGESIC-100 [Suspect]
     Indication: CANCER PAIN
     Route: 062
  2. LORAZEPAM [Concomitant]
     Indication: SEDATION
     Route: 048
  3. AMITRIPTYLINE HCL [Concomitant]
     Indication: PAIN MANAGEMENT
     Route: 048
  4. ZOLPIDEM [Concomitant]
     Indication: SLEEP DISORDER
     Route: 048
  5. ACETAMINOPHEN [Concomitant]
     Indication: PAIN MANAGEMENT
     Route: 048

REACTIONS (1)
  - CARDIO-RESPIRATORY ARREST [None]
